FAERS Safety Report 5089990-4 (Version None)
Quarter: 2006Q3

REPORT INFORMATION
  Report Type: 
  Country: None (occurrence: None)
  Receive Date: 20060731
  Receipt Date: 20060328
  Transmission Date: 20061208
  Serious: Yes (Other)
  Sender: FDA-Public Use
  Company Number: 200611206BWH

PATIENT
  Age: 80 Year
  Sex: Female
  Weight: 58.514 kg

DRUGS (7)
  1. AVELOX [Suspect]
     Indication: PHARYNGOLARYNGEAL PAIN
     Dosage: 400 MG, QD, ORAL
     Route: 048
     Dates: start: 20060130
  2. AVELOX [Suspect]
     Indication: RESPIRATORY TRACT INFECTION
     Dosage: 400 MG, QD, ORAL
     Route: 048
     Dates: start: 20060130
  3. AVELOX [Suspect]
     Indication: SINUSITIS
     Dosage: 400 MG, QD, ORAL
     Route: 048
     Dates: start: 20060130
  4. LIPITOR [Concomitant]
  5. ZETIA [Concomitant]
  6. ZOLOFT [Concomitant]
  7. SYNTHROID [Concomitant]

REACTIONS (5)
  - CONVULSION [None]
  - DIZZINESS [None]
  - HYPOTENSION [None]
  - PALPITATIONS [None]
  - SYNCOPE [None]
